FAERS Safety Report 5059230-0 (Version None)
Quarter: 2006Q3

REPORT INFORMATION
  Report Type: 
  Country: None (occurrence: None)
  Receive Date: 20060718
  Receipt Date: 20060705
  Transmission Date: 20061208
  Serious: Yes (Death)
  Sender: FDA-Public Use
  Company Number: 2006084150

PATIENT
  Age: 55 Year
  Sex: Male

DRUGS (3)
  1. VIAGRA [Suspect]
     Indication: DRUG USE FOR UNKNOWN INDICATION
     Dosage: ORAL
     Route: 048
  2. ANTIHYPERTENSIVE (ANTIHYPERTENSIVE) [Concomitant]
  3. ANTI-DIABETICS (ANTI-DIABETICS) [Concomitant]

REACTIONS (1)
  - CARDIAC FAILURE [None]
